FAERS Safety Report 20826046 (Version 3)
Quarter: 2023Q2

REPORT INFORMATION
  Report Type: Spontaneous
  Country: US (occurrence: US)
  Receive Date: 20220513
  Receipt Date: 20230626
  Transmission Date: 20230721
  Serious: No
  Sender: FDA-Public Use
  Company Number: US-BIOGEN-2022BI01122794

PATIENT
  Sex: Female

DRUGS (2)
  1. TYSABRI [Suspect]
     Active Substance: NATALIZUMAB
     Indication: Multiple sclerosis
     Route: 050
     Dates: start: 20110621, end: 20200921
  2. TYSABRI [Suspect]
     Active Substance: NATALIZUMAB
     Route: 050
     Dates: start: 20210202

REACTIONS (6)
  - Therapeutic response shortened [Unknown]
  - Mobility decreased [Unknown]
  - Gait disturbance [Recovered/Resolved]
  - Pain [Unknown]
  - Sluggishness [Unknown]
  - Brain fog [Unknown]
